FAERS Safety Report 8211520-6 (Version None)
Quarter: 2012Q1

REPORT INFORMATION
  Report Type: 
  Country: None (occurrence: None)
  Receive Date: 20120315
  Receipt Date: 20120307
  Transmission Date: 20120608
  Serious: Yes (Other)
  Sender: FDA-Public Use
  Company Number: KR-B.I. PHARMACEUTICALS,INC./RIDGEFIELD-2011-BP-28097YA

PATIENT
  Age: 72 Year
  Sex: Male
  Weight: 75 kg

DRUGS (4)
  1. FINASTERIDE [Concomitant]
     Dates: start: 20110518
  2. LACTIC ACID (LACTIC ACID) [Concomitant]
     Dates: start: 20110510
  3. TAMSULOSIN HCL [Suspect]
     Indication: NEUROGENIC BLADDER
     Route: 048
     Dates: start: 20110518
  4. POLYCARBOPHIL CALCIUM (POLYCARBOPHIL CALCIUM) [Concomitant]
     Dates: start: 20110510

REACTIONS (1)
  - COLON CANCER [None]
